FAERS Safety Report 4362700-1 (Version None)
Quarter: 2004Q2

REPORT INFORMATION
  Report Type: 
  Country: None (occurrence: None)
  Receive Date: 20040517
  Receipt Date: 20040408
  Transmission Date: 20050107
  Serious: No
  Sender: FDA-Public Use
  Company Number: S04-USA-01978-01

PATIENT
  Age: 83 Year
  Sex: Female

DRUGS (3)
  1. NAMENDA [Suspect]
     Indication: DEMENTIA ALZHEIMER'S TYPE
     Dosage: 5 MG QD PO
     Route: 048
     Dates: start: 20040401
  2. SOMETHING FOR HYPERTENSION [Concomitant]
  3. SOMETHING FOR CONGESTIVE HEART FAILURE [Concomitant]

REACTIONS (3)
  - CONFUSIONAL STATE [None]
  - PERIPHERAL COLDNESS [None]
  - RASH MACULAR [None]
